FAERS Safety Report 20673247 (Version 1)
Quarter: 2022Q2

REPORT INFORMATION
  Report Type: Spontaneous
  Country: US (occurrence: None)
  Receive Date: 20220403
  Receipt Date: 20220403
  Transmission Date: 20220721
  Serious: No
  Sender: FDA-Public Use
  Company Number: None

PATIENT
  Age: 37 Year
  Sex: Male
  Weight: 88 kg

DRUGS (1)
  1. LITHIUM [Suspect]
     Active Substance: LITHIUM
     Indication: Affective disorder
     Route: 048
     Dates: start: 20220125

REACTIONS (4)
  - Tremor [None]
  - Acute kidney injury [None]
  - Antipsychotic drug level increased [None]
  - Therapy cessation [None]

NARRATIVE: CASE EVENT DATE: 20220125
